FAERS Safety Report 9969608 (Version 1)
Quarter: 2014Q1

REPORT INFORMATION
  Report Type: Spontaneous
  Country: US (occurrence: None)
  Receive Date: 20140304
  Receipt Date: 20140304
  Transmission Date: 20141002
  Serious: Yes (Hospitalization, Other)
  Sender: FDA-Public Use
  Company Number: US-ZYDUS-002616

PATIENT
  Age: 31 Year
  Sex: Female

DRUGS (2)
  1. LOSARTAN (LOSARTAN) [Suspect]
     Indication: HYPERTENSION
  2. LISINOPRIL (LISINOPRIL) [Suspect]

REACTIONS (7)
  - Angioedema [None]
  - Small bowel angioedema [None]
  - Diarrhoea [None]
  - Cough [None]
  - Abdominal pain [None]
  - Nausea [None]
  - Vomiting [None]
